FAERS Safety Report 15503377 (Version 1)
Quarter: 2018Q4

REPORT INFORMATION
  Report Type: Spontaneous
  Country: US (occurrence: US)
  Receive Date: 20181015
  Receipt Date: 20181015
  Transmission Date: 20190205
  Serious: Yes (Hospitalization, Disabling)
  Sender: FDA-Public Use
  Company Number: None

PATIENT
  Age: 33 Year
  Sex: Female
  Weight: 63 kg

DRUGS (1)
  1. LEVOFLOXACIN. [Suspect]
     Active Substance: LEVOFLOXACIN
     Indication: PNEUMONIA
     Dosage: ?          QUANTITY:1 TABLET(S);?
     Route: 048
     Dates: start: 20180514, end: 20180520

REACTIONS (6)
  - Gait disturbance [None]
  - Immunosuppression [None]
  - Skin infection [None]
  - Drug ineffective [None]
  - Muscle strain [None]
  - Sepsis [None]

NARRATIVE: CASE EVENT DATE: 20180514
